FAERS Safety Report 23842473 (Version 1)
Quarter: 2024Q2

REPORT INFORMATION
  Report Type: Spontaneous
  Country: US (occurrence: None)
  Receive Date: 20240509
  Receipt Date: 20240509
  Transmission Date: 20240716
  Serious: Yes (Hospitalization)
  Sender: FDA-Public Use
  Company Number: None

PATIENT
  Age: 68 Year
  Sex: Male
  Weight: 86 kg

DRUGS (1)
  1. SEMAGLUTIDE [Suspect]
     Active Substance: SEMAGLUTIDE
     Indication: Diabetes mellitus
     Dosage: 0.25 MG QWEEK SQ
     Route: 058
     Dates: start: 20240314, end: 20240326

REACTIONS (6)
  - Diarrhoea [None]
  - Lethargy [None]
  - Pain [None]
  - Vomiting [None]
  - Mental status changes [None]
  - Hypersensitivity [None]

NARRATIVE: CASE EVENT DATE: 20240326
